FAERS Safety Report 10100470 (Version 2)
Quarter: 2014Q2

REPORT INFORMATION
  Report Type: Report from Study
  Country: IT (occurrence: IT)
  Receive Date: 20140423
  Receipt Date: 20140423
  Transmission Date: 20141212
  Serious: Yes (Hospitalization)
  Sender: FDA-Public Use
  Company Number: PHHY2014IT002607

PATIENT
  Age: 65 Year
  Sex: Male
  Weight: 88 kg

DRUGS (4)
  1. AMN107 [Suspect]
     Indication: CHRONIC MYELOID LEUKAEMIA
     Dosage: 600 MG, DAILY
     Route: 048
     Dates: start: 20110120
  2. OMNIC [Concomitant]
     Dosage: 0.4 MG
  3. LETZOL [Concomitant]
  4. CIPROXEN [Concomitant]
     Dosage: 500 MG

REACTIONS (1)
  - Nephrolithiasis [Recovered/Resolved]
